FAERS Safety Report 14124523 (Version 8)
Quarter: 2018Q3

REPORT INFORMATION
  Report Type: Report from Study
  Country: CA (occurrence: CA)
  Receive Date: 20171025
  Receipt Date: 20180830
  Transmission Date: 20181010
  Serious: Yes (Other)
  Sender: FDA-Public Use
  Company Number: CA-PFIZER INC-2017427807

PATIENT
  Age: 68 Year
  Sex: Male

DRUGS (7)
  1. RAMIPRIL. [Concomitant]
     Active Substance: RAMIPRIL
     Dosage: 2.5 MG, QD
  2. ENTYVIO [Suspect]
     Active Substance: VEDOLIZUMAB
     Dosage: 300 MG, CYCLIC (EVERY FOUR WEEKS)
     Route: 042
     Dates: start: 20171206
  3. IRON [Concomitant]
     Active Substance: IRON
     Dosage: UNKNOWN DOSE, QD
  4. FLOMAX [Concomitant]
     Active Substance: TAMSULOSIN HYDROCHLORIDE
     Dosage: 40 MG, BID
     Route: 048
  5. TECTA [Suspect]
     Active Substance: PANTOPRAZOLE MAGNESIUM
     Dosage: 40 MG, UNKNOWN FREQUENCY
     Route: 065
  6. VITAMIN B12 [Concomitant]
     Active Substance: CYANOCOBALAMIN
     Dosage: UNKNOWN DOSE, CYCLIC (EVERY TWO WEEKS, Q2WEEKS)
  7. ENTYVIO [Suspect]
     Active Substance: VEDOLIZUMAB
     Indication: CROHN^S DISEASE
     Dosage: 300 MG, UNK
     Route: 042
     Dates: start: 20170926

REACTIONS (8)
  - Cough [Unknown]
  - Heart rate irregular [Unknown]
  - Blood pressure increased [Not Recovered/Not Resolved]
  - Pyrexia [Recovered/Resolved]
  - Weight fluctuation [Unknown]
  - Blood pressure decreased [Unknown]
  - Pulmonary congestion [Unknown]
  - Oxygen saturation decreased [Unknown]

NARRATIVE: CASE EVENT DATE: 20170926
